FAERS Safety Report 4838930-9 (Version None)
Quarter: 2005Q4

REPORT INFORMATION
  Report Type: 
  Country: None (occurrence: None)
  Receive Date: 20051123
  Receipt Date: 20051123
  Transmission Date: 20060501
  Serious: Yes (Hospitalization)
  Sender: FDA-Public Use
  Company Number: None

PATIENT
  Age: 90 Year
  Sex: Female

DRUGS (1)
  1. ARICEPT [Suspect]
     Indication: DEMENTIA
     Dosage: 5MG DAILY PO
     Route: 048
     Dates: start: 20041229, end: 20050101

REACTIONS (3)
  - ABDOMINAL PAIN [None]
  - DEMENTIA [None]
  - VOMITING [None]
